FAERS Safety Report 9850421 (Version 1)
Quarter: 2013Q4

REPORT INFORMATION
  Report Type: Spontaneous
  Country: US (occurrence: None)
  Receive Date: 20131226
  Receipt Date: 20131226
  Transmission Date: 20140711
  Serious: Yes (Death)
  Sender: FDA-Public Use
  Company Number: PHEH2012US008586

PATIENT
  Age: 65 Year
  Sex: Female

DRUGS (1)
  1. AFINITOR ( RAD) UNKNOWN [Suspect]
     Indication: BREAST CANCER METASTATIC
     Route: 048
     Dates: start: 20111214, end: 20120209

REACTIONS (2)
  - Neoplasm [None]
  - Malignant neoplasm progression [None]
